FAERS Safety Report 5537420-8 (Version None)
Quarter: 2007Q4

REPORT INFORMATION
  Report Type: 
  Country: None (occurrence: None)
  Receive Date: 20071207
  Receipt Date: 20071130
  Transmission Date: 20080405
  Serious: Yes (Other)
  Sender: FDA-Public Use
  Company Number: B0498674A

PATIENT
  Age: 46 Year
  Sex: Male

DRUGS (5)
  1. RETROVIR [Suspect]
     Indication: HIV INFECTION
     Route: 065
     Dates: start: 19970101
  2. KALETRA [Concomitant]
     Route: 065
  3. EPILIM [Concomitant]
     Route: 065
  4. CALTRATE [Concomitant]
     Route: 065
  5. ANTIRETROVIRAL MEDICATIONS [Concomitant]
     Route: 065

REACTIONS (2)
  - LIPOATROPHY [None]
  - WEIGHT DECREASED [None]
